FAERS Safety Report 9754495 (Version 1)
Quarter: 2013Q4

REPORT INFORMATION
  Report Type: Spontaneous
  Country: US (occurrence: US)
  Receive Date: 20131213
  Receipt Date: 20131213
  Transmission Date: 20140711
  Serious: Yes (Other)
  Sender: FDA-Public Use
  Company Number: US-ABBVIE-13P-163-1176918-00

PATIENT
  Sex: Female

DRUGS (1)
  1. LUPRON [Suspect]
     Indication: DRUG THERAPY
     Dosage: 3 MONTH SHOT
     Dates: start: 200612

REACTIONS (3)
  - Hysterectomy [Unknown]
  - Headache [Unknown]
  - Vaginal haemorrhage [Unknown]
